FAERS Safety Report 6510704-2 (Version None)
Quarter: 2009Q4

REPORT INFORMATION
  Report Type: 
  Country: None (occurrence: None)
  Receive Date: 20091222
  Receipt Date: 20091021
  Transmission Date: 20100525
  Serious: No
  Sender: FDA-Public Use
  Company Number: US-ASTRAZENECA-2009SE21587

PATIENT
  Age: 77 Year
  Sex: Male
  Weight: 83.5 kg

DRUGS (4)
  1. CRESTOR [Suspect]
     Indication: BLOOD CHOLESTEROL INCREASED
     Route: 048
     Dates: start: 20090921
  2. NIASPAN [Concomitant]
  3. LITHIUM CARBONATE [Concomitant]
  4. ATENOLOL [Concomitant]

REACTIONS (1)
  - DYSPNOEA EXERTIONAL [None]
